FAERS Safety Report 8749411 (Version 2)
Quarter: 2012Q4

REPORT INFORMATION
  Report Type: Spontaneous
  Country: US (occurrence: None)
  Receive Date: 20120806
  Receipt Date: 20120822
  Transmission Date: 20130627
  Serious: Yes (Other)
  Sender: FDA-Public Use
  Company Number: 2012SA052469

PATIENT
  Age: 58 Year
  Sex: Female
  Weight: 76 kg

DRUGS (4)
  1. TROLAMINE [Suspect]
     Indication: LEG PAIN
     Dosage: TOPICAL
     Route: 061
     Dates: start: 201206, end: 201206
  2. LUNESTA [Concomitant]
  3. NORVASC [Concomitant]
  4. LISINOPRIL [Concomitant]

REACTIONS (3)
  - Application site pain [None]
  - Application site discolouration [None]
  - Application site scar [None]
